FAERS Safety Report 6038616-1 (Version None)
Quarter: 2009Q1

REPORT INFORMATION
  Report Type: 
  Country: None (occurrence: None)
  Receive Date: 20090114
  Receipt Date: 20090114
  Transmission Date: 20090719
  Serious: Yes (Hospitalization)
  Sender: FDA-Public Use
  Company Number: None

PATIENT
  Sex: Male
  Weight: 86.3 kg

DRUGS (3)
  1. CYTARABINE [Suspect]
     Dosage: 31.68 G
     Dates: end: 20081209
  2. ETOPOSIDE [Suspect]
     Dosage: 2880 MG
  3. G-CSF (FILGRASTIM, AMGEN) [Suspect]
     Dosage: 9300 MCG

REACTIONS (8)
  - BACTERIAL CULTURE POSITIVE [None]
  - CENTRAL LINE INFECTION [None]
  - ENTEROBACTER INFECTION [None]
  - FEBRILE NEUTROPENIA [None]
  - HYPOTENSION [None]
  - PANCYTOPENIA [None]
  - REFUSAL OF TREATMENT BY PATIENT [None]
  - TREATMENT NONCOMPLIANCE [None]
